FAERS Safety Report 23104378 (Version 2)
Quarter: 2023Q4

REPORT INFORMATION
  Report Type: Spontaneous
  Country: US (occurrence: US)
  Receive Date: 20231025
  Receipt Date: 20231221
  Transmission Date: 20240109
  Serious: No
  Sender: FDA-Public Use
  Company Number: US-BRISTOL-MYERS SQUIBB COMPANY-2023-151413

PATIENT
  Age: 61 Year
  Sex: Male

DRUGS (1)
  1. POMALYST [Suspect]
     Active Substance: POMALIDOMIDE
     Indication: Plasma cell myeloma
     Dosage: FREQ: QD FOR 21 DAYS
     Route: 048

REACTIONS (5)
  - Nausea [Unknown]
  - Pain [Unknown]
  - Asthenia [Unknown]
  - Pollakiuria [Unknown]
  - Muscle spasms [Unknown]
